FAERS Safety Report 15669193 (Version 1)
Quarter: 2018Q4

REPORT INFORMATION
  Report Type: Spontaneous
  Country: US (occurrence: US)
  Receive Date: 20181116
  Receipt Date: 20181116
  Transmission Date: 20190205
  Serious: Yes (Other)
  Sender: FDA-Public Use
  Company Number: None

PATIENT
  Age: 54 Year
  Sex: Female
  Weight: 90.72 kg

DRUGS (32)
  1. MAGNESIUM [Concomitant]
     Active Substance: MAGNESIUM
  2. ABSORB B-12 [Concomitant]
  3. OMEPRAZOLE. [Concomitant]
     Active Substance: OMEPRAZOLE
  4. ALPRAZOLAM. [Concomitant]
     Active Substance: ALPRAZOLAM
  5. VITAMIN D3 [Concomitant]
     Active Substance: CHOLECALCIFEROL
  6. LAMOTRIGINE. [Suspect]
     Active Substance: LAMOTRIGINE
     Dosage: ?          QUANTITY:50MG AM/100MG PM;?
     Route: 048
  7. FLONASE [Concomitant]
     Active Substance: FLUTICASONE PROPIONATE
  8. ACIDOPHILILUS [Concomitant]
  9. TRIPLE OMEGA [Concomitant]
  10. VITAMIN C [Concomitant]
     Active Substance: ASCORBIC ACID
  11. B6 [Concomitant]
     Active Substance: PYRIDOXINE HYDROCHLORIDE
  12. GLYCOLAP [Concomitant]
  13. ACETYL L CARNITINE [Concomitant]
  14. BERBERTINE + CINNAMON BARK [Concomitant]
  15. ALFALFA [Concomitant]
     Active Substance: ALFALFA
  16. ANDREW LESSMAN MSM + SCALP [Concomitant]
  17. BEETROOT [Concomitant]
  18. LAMOTRIGINE. [Suspect]
     Active Substance: LAMOTRIGINE
     Indication: SEIZURE
     Route: 048
     Dates: start: 20180615
  19. COLON CLEANSE [Concomitant]
  20. CITRUS BIOFLAVINOID [Concomitant]
  21. KETACONAZOLE SHAMPOO [Concomitant]
  22. ATENOLOL. [Concomitant]
     Active Substance: ATENOLOL
  23. BENADRYL [Concomitant]
     Active Substance: DIPHENHYDRAMINE HYDROCHLORIDE
  24. GENZYME Q10 [Concomitant]
  25. TURMURIC + CURCUMIN [Concomitant]
  26. ALOE VERA [Concomitant]
     Active Substance: ALOE VERA LEAF
  27. LAMOTRIGINE. [Suspect]
     Active Substance: LAMOTRIGINE
     Dosage: ?          QUANTITY:100 MG AM/100MG PM;?
     Route: 048
  28. LANAPROST [Concomitant]
  29. RANTADINE [Concomitant]
  30. VITAMIN E [Concomitant]
     Active Substance: .ALPHA.-TOCOPHEROL
  31. POTASSIUM [Concomitant]
     Active Substance: POTASSIUM
  32. MEG FOLAT [Concomitant]

REACTIONS (13)
  - Acne [None]
  - Skin exfoliation [None]
  - Muscular weakness [None]
  - Suicidal ideation [None]
  - Gait inability [None]
  - Rash [None]
  - Scar [None]
  - Skin lesion [None]
  - Blister [None]
  - Eye swelling [None]
  - Stupor [None]
  - Blindness [None]
  - Arthralgia [None]

NARRATIVE: CASE EVENT DATE: 20180615
